FAERS Safety Report 18472915 (Version 1)
Quarter: 2020Q4

REPORT INFORMATION
  Report Type: Spontaneous
  Country: NL (occurrence: NL)
  Receive Date: 20201106
  Receipt Date: 20201106
  Transmission Date: 20210114
  Serious: Yes (Other)
  Sender: FDA-Public Use
  Company Number: NL-TEVA-2020-NL-1845208

PATIENT
  Sex: Female
  Weight: 53 kg

DRUGS (5)
  1. AMOXICILLINE/CLAVULAANZUUR TABLET 500/125MG / BRAND NAME NOT SPECIFIED [Suspect]
     Active Substance: AMOXICILLIN\CLAVULANIC ACID
     Indication: SINUSITIS
     Dosage: 3 DOSAGE FORMS DAILY;
     Dates: start: 20200926, end: 20201002
  2. CICLESONIDE AEROSOL 160UG/DO / ALVESCO 160 AEROSOL 160MCG/DO SPBS  60D [Concomitant]
     Dosage: AEROSOL, 160 UG / DOSE (MICROGRAMS PER DOSE),  THERAPY START DATE AND END DATE: ASKED BUT UNKNOWN
  3. AZITROMYCINE TABLET 250MG / BRAND NAME NOT SPECIFIED [Concomitant]
     Dosage: 250 MG (MILLIGRAM), THERAPY START DATE AND END DATE: ASKED BUT UNKNOWN
  4. FORMOTEROL INHALATIEPOEDER  6UG/DO / OXIS TURBUHALER INHALPDR  6MCG/DO [Concomitant]
     Dosage: 6 UG / DOSE (MICROGRAMS PER DOSE), THERAPY START DATE AND END DATE: ASKED BUT UNKNOWN
  5. AZELASTINE/FLUTICASON NEUSSPRAY 137/50UG/DO / DYMISTA NEUSSPRAY 137/50 [Concomitant]
     Dosage: 137/50 UG / DOSE (MICROGRAMS PER DOSE),  THERAPY START DATE AND END DATE: ASKED BUT UNKNOWN

REACTIONS (2)
  - Haematochezia [Recovered/Resolved]
  - Diarrhoea [Recovered/Resolved]
